FAERS Safety Report 23458261 (Version 4)
Quarter: 2024Q2

REPORT INFORMATION
  Report Type: Spontaneous
  Country: US (occurrence: US)
  Receive Date: 20240130
  Receipt Date: 20240405
  Transmission Date: 20240715
  Serious: Yes (Other)
  Sender: FDA-Public Use
  Company Number: US-JNJFOC-20240166414

PATIENT
  Sex: Female

DRUGS (4)
  1. UPTRAVI [Suspect]
     Active Substance: SELEXIPAG
     Indication: Product used for unknown indication
     Route: 048
  2. AMBRISENTAN [Suspect]
     Active Substance: AMBRISENTAN
     Indication: Product used for unknown indication
     Route: 065
     Dates: start: 20230321
  3. ELIQUIS [Concomitant]
     Active Substance: APIXABAN
  4. PROCRIT [Concomitant]
     Active Substance: ERYTHROPOIETIN

REACTIONS (10)
  - Colitis [Not Recovered/Not Resolved]
  - Haematochezia [Not Recovered/Not Resolved]
  - Melaena [Unknown]
  - Haemorrhage [Not Recovered/Not Resolved]
  - Weight decreased [Not Recovered/Not Resolved]
  - Nausea [Not Recovered/Not Resolved]
  - Feeding disorder [Not Recovered/Not Resolved]
  - Pain [Not Recovered/Not Resolved]
  - Anaemia [Not Recovered/Not Resolved]
  - Polypectomy [Unknown]
